FAERS Safety Report 5052707-3 (Version None)
Quarter: 2006Q3

REPORT INFORMATION
  Report Type: 
  Country: None (occurrence: None)
  Receive Date: 20060717
  Receipt Date: 20060608
  Transmission Date: 20061208
  Serious: Yes (Death)
  Sender: FDA-Public Use
  Company Number: BR-ABBOTT-06P-020-0335594-00

PATIENT
  Sex: Male

DRUGS (5)
  1. KALETRA [Suspect]
     Indication: HIV INFECTION
     Route: 048
  2. LAMIVUDINE [Suspect]
     Indication: DRUG USE FOR UNKNOWN INDICATION
  3. STAVUDINE [Suspect]
     Indication: DRUG USE FOR UNKNOWN INDICATION
  4. EFAVIRENZ [Suspect]
     Indication: DRUG USE FOR UNKNOWN INDICATION
  5. LAMIVUDINE + ZIDOVUDINE [Concomitant]
     Indication: HIV INFECTION
     Route: 048

REACTIONS (1)
  - HEPATITIS [None]
